FAERS Safety Report 9738528 (Version 1)
Quarter: 2013Q4

REPORT INFORMATION
  Report Type: Spontaneous
  Country: US (occurrence: US)
  Receive Date: 20131209
  Receipt Date: 20131209
  Transmission Date: 20140711
  Serious: Yes (Other)
  Sender: FDA-Public Use
  Company Number: US-PFIZER INC-2013346542

PATIENT
  Age: 74 Year
  Sex: Male

DRUGS (4)
  1. SUTENT [Suspect]
     Indication: MALIGNANT NEOPLASM OF PLEURA
     Dosage: 50 MG, DAILY
     Route: 048
     Dates: start: 20131020, end: 20131109
  2. LISINOPRIL [Concomitant]
     Dosage: UNK
  3. HYDROCHLOROTHIAZIDE [Concomitant]
     Dosage: UNK
  4. METOPROLOL [Concomitant]
     Dosage: UNK

REACTIONS (8)
  - Yellow skin [Recovered/Resolved]
  - Weight decreased [Recovered/Resolved]
  - Chills [Recovered/Resolved]
  - Diarrhoea [Recovered/Resolved]
  - Headache [Recovered/Resolved]
  - Night sweats [Recovered/Resolved]
  - Hepatic enzyme increased [Recovered/Resolved]
  - Off label use [Unknown]
